FAERS Safety Report 5695281-0 (Version None)
Quarter: 2008Q2

REPORT INFORMATION
  Report Type: 
  Country: None (occurrence: None)
  Receive Date: 20080404
  Receipt Date: 20080312
  Transmission Date: 20081010
  Serious: Yes (Life-Threatening, Hospitalization, Other)
  Sender: FDA-Public Use
  Company Number: DE-ABBOTT-06P-062-0346729-00

PATIENT
  Sex: Male
  Weight: 75 kg

DRUGS (8)
  1. KALETRA [Suspect]
     Indication: HIV INFECTION
     Dosage: 3 DOSES
     Route: 048
     Dates: start: 20060519, end: 20070420
  2. KALETRA [Suspect]
     Route: 048
     Dates: start: 20070421
  3. TRUVADA [Suspect]
     Indication: HIV INFECTION
     Dosage: 1 DOSE
     Route: 048
     Dates: start: 20060519
  4. PROTHIPENDYL HYDROCHLORIDE [Concomitant]
     Indication: PREMEDICATION
     Dosage: 10 DOSES
     Route: 048
  5. FUROSEMIDE [Concomitant]
     Indication: FLUID RETENTION
     Dosage: 1 DOSE
     Route: 048
  6. ENDRONAX [Concomitant]
     Indication: DEPRESSION
     Route: 048
  7. TESTOSTERONE [Concomitant]
     Indication: BLOOD TESTOSTERONE DECREASED
     Route: 030
  8. METAMIZOLE SODIUM [Concomitant]
     Indication: HEADACHE
     Route: 048
     Dates: start: 20060908

REACTIONS (14)
  - BLOOD PRESSURE INCREASED [None]
  - DIARRHOEA [None]
  - DYSPHAGIA [None]
  - EYELID PTOSIS [None]
  - FOLLICULITIS [None]
  - HEADACHE [None]
  - MENINGISM [None]
  - PARALYSIS [None]
  - PYREXIA [None]
  - RHINITIS [None]
  - RUPTURED CEREBRAL ANEURYSM [None]
  - SCIATICA [None]
  - SINUSITIS [None]
  - SUBARACHNOID HAEMORRHAGE [None]
